FAERS Safety Report 23296492 (Version 1)
Quarter: 2023Q4

REPORT INFORMATION
  Report Type: Spontaneous
  Country: US (occurrence: None)
  Receive Date: 20231214
  Receipt Date: 20231214
  Transmission Date: 20240109
  Serious: Yes (Hospitalization)
  Sender: FDA-Public Use
  Company Number: None

PATIENT
  Age: 76 Year
  Sex: Female
  Weight: 67.5 kg

DRUGS (8)
  1. ANASTROZOLE [Suspect]
     Active Substance: ANASTROZOLE
     Indication: Hormone therapy
     Dosage: OTHER QUANTITY : 1 TABLET(S);?FREQUENCY : DAILY;?
     Route: 048
     Dates: start: 20231001, end: 20231012
  2. OTC - B12 [Concomitant]
  3. VIT C [Concomitant]
  4. VITAMIN D3 [Concomitant]
     Active Substance: CHOLECALCIFEROL
  5. calcium w D [Concomitant]
  6. VITAMIN E [Concomitant]
     Active Substance: .ALPHA.-TOCOPHEROL
  7. Glucosamine Condroitine [Concomitant]
  8. Multi-Vitamin 50+ Women^s [Concomitant]

REACTIONS (2)
  - Hyperhidrosis [None]
  - Vertigo positional [None]

NARRATIVE: CASE EVENT DATE: 20231010
